FAERS Safety Report 5964714-4 (Version None)
Quarter: 2008Q4

REPORT INFORMATION
  Report Type: 
  Country: None (occurrence: None)
  Receive Date: 20081125
  Receipt Date: 20081009
  Transmission Date: 20090506
  Serious: No
  Sender: FDA-Public Use
  Company Number: US-AMGEN-KDL311942

PATIENT
  Sex: Female

DRUGS (5)
  1. ENBREL [Suspect]
     Indication: RHEUMATOID ARTHRITIS
     Route: 058
     Dates: start: 20060101
  2. RELAFEN [Concomitant]
  3. BONIVA [Concomitant]
  4. NEXIUM [Concomitant]
  5. TRAMADOL HCL [Concomitant]

REACTIONS (2)
  - BUNION [None]
  - LIGAMENT RUPTURE [None]
